FAERS Safety Report 8808763 (Version 1)
Quarter: 2012Q4

REPORT INFORMATION
  Report Type: 
  Country: US (occurrence: US)
  Receive Date: 20120926
  Receipt Date: 20120926
  Transmission Date: 20130627
  Serious: No
  Sender: FDA-Public Use
  Company Number: US-BAYER-2012-098430

PATIENT
  Age: 58 Year
  Sex: Female

DRUGS (11)
  1. BETASERON [Suspect]
     Dosage: 0.25 mg, QOD
     Route: 058
  2. BACLOFEN [Concomitant]
     Dosage: 10 mg, UNK
  3. LORCET [Concomitant]
     Dosage: 7.5-650
  4. DITROPAN [Concomitant]
     Dosage: 5 mg, UNK
  5. AMITIZA [Concomitant]
     Dosage: 8 ?g, UNK
  6. AMANTADINE [Concomitant]
     Dosage: 100 mg, UNK
  7. SYNTHROID [Concomitant]
     Dosage: 50 ?g, UNK
  8. LIPITOR [Concomitant]
     Dosage: 10 mg, UNK
  9. HYDROCHLOROTHIAZIDE [Concomitant]
     Dosage: 12.5 mg, UNK
  10. MACRODANTIN [Concomitant]
     Dosage: 25 mg, UNK
  11. ACTONEL [Concomitant]
     Dosage: 150 mg, UNK

REACTIONS (3)
  - Injection site reaction [Unknown]
  - Injection site urticaria [Unknown]
  - Injection site pain [Unknown]
